FAERS Safety Report 15197006 (Version 2)
Quarter: 2018Q3

REPORT INFORMATION
  Report Type: Spontaneous
  Country: US (occurrence: US)
  Receive Date: 20180725
  Receipt Date: 20180914
  Transmission Date: 20181010
  Serious: Yes (Hospitalization)
  Sender: FDA-Public Use
  Company Number: US-VIFOR (INTERNATIONAL) INC.-VIT-2018-06826

PATIENT
  Age: 66 Year
  Sex: Female

DRUGS (14)
  1. GLUCOSAMINE HCL [Concomitant]
     Active Substance: GLUCOSAMINE
  2. VELTASSA [Suspect]
     Active Substance: PATIROMER
     Indication: HYPERKALAEMIA
     Route: 048
     Dates: start: 20180417
  3. FUROSEMIDE. [Concomitant]
     Active Substance: FUROSEMIDE
  4. LOSARTAN POTASSIUM. [Concomitant]
     Active Substance: LOSARTAN POTASSIUM
  5. HYDRALAZINE HCL [Concomitant]
     Active Substance: HYDRALAZINE HYDROCHLORIDE
  6. ZYRTEC [Concomitant]
     Active Substance: CETIRIZINE HYDROCHLORIDE
  7. TRESIBA [Concomitant]
     Active Substance: INSULIN DEGLUDEC
  8. CARDURA [Concomitant]
     Active Substance: DOXAZOSIN MESYLATE
  9. LEVOTHYROXINE SODIUM. [Concomitant]
     Active Substance: LEVOTHYROXINE SODIUM
  10. NOVOLOG [Concomitant]
     Active Substance: INSULIN ASPART
  11. LEVEMIR [Concomitant]
     Active Substance: INSULIN DETEMIR
  12. PRAVASTATIN SODIUM. [Concomitant]
     Active Substance: PRAVASTATIN SODIUM
  13. ASPIRIN. [Concomitant]
     Active Substance: ASPIRIN
  14. VERAPAMIL HCL [Concomitant]
     Active Substance: VERAPAMIL HYDROCHLORIDE

REACTIONS (5)
  - Off label use [Unknown]
  - Renal disorder [Unknown]
  - Swelling [Unknown]
  - Fluid retention [Unknown]
  - Dehydration [Unknown]

NARRATIVE: CASE EVENT DATE: 2018
